FAERS Safety Report 5088693-X (Version None)
Quarter: 2006Q3

REPORT INFORMATION
  Report Type: 
  Country: None (occurrence: None)
  Receive Date: 20060822
  Receipt Date: 20060810
  Transmission Date: 20061208
  Serious: Yes (Other)
  Sender: FDA-Public Use
  Company Number: ES200608002664

PATIENT
  Age: 48 Year
  Sex: Female
  Weight: 52 kg

DRUGS (1)
  1. ZYPREXA [Suspect]
     Dosage: 7.5 MG,DAILY (1/D), ORAL
     Route: 048
     Dates: start: 20060706

REACTIONS (2)
  - SLEEP WALKING [None]
  - SOMNOLENCE [None]
